FAERS Safety Report 20784720 (Version 1)
Quarter: 2022Q2

REPORT INFORMATION
  Report Type: Spontaneous
  Country: US (occurrence: US)
  Receive Date: 20220504
  Receipt Date: 20220504
  Transmission Date: 20220721
  Serious: No
  Sender: FDA-Public Use
  Company Number: US-PFIZER INC-202200646720

PATIENT

DRUGS (1)
  1. PAXLOVID [Suspect]
     Active Substance: NIRMATRELVIR\RITONAVIR
     Dosage: UNK, 2X/DAY (I TOOK YESTERDAY 3 IN THE MORNING AND 3 IN THE EVENING)
     Dates: start: 20220429

REACTIONS (1)
  - Bowel movement irregularity [Unknown]

NARRATIVE: CASE EVENT DATE: 20220430
